FAERS Safety Report 5495834-9 (Version None)
Quarter: 2007Q4

REPORT INFORMATION
  Report Type: 
  Country: None (occurrence: None)
  Receive Date: 20071025
  Receipt Date: 20061031
  Transmission Date: 20080405
  Serious: No
  Sender: FDA-Public Use
  Company Number: A0625578A

PATIENT
  Age: 83 Year
  Sex: Female

DRUGS (9)
  1. ADVAIR DISKUS 100/50 [Suspect]
     Indication: DRUG USE FOR UNKNOWN INDICATION
     Dosage: 1PUFF TWICE PER DAY
     Route: 055
  2. MECLIZINE [Concomitant]
  3. ALDACTAZIDE [Concomitant]
  4. BUSPIRONE HCL [Concomitant]
  5. LORAZEPAM [Concomitant]
  6. POTASSIUM CHLORIDE [Concomitant]
  7. SIMVASTATIN [Concomitant]
  8. ASPIRIN [Concomitant]
  9. CALCIUM [Concomitant]

REACTIONS (1)
  - YAWNING [None]
